FAERS Safety Report 9401343 (Version 1)
Quarter: 2013Q3

REPORT INFORMATION
  Report Type: Spontaneous
  Country: GB (occurrence: GB)
  Receive Date: 20130715
  Receipt Date: 20130715
  Transmission Date: 20140515
  Serious: Yes (Other)
  Sender: FDA-Public Use
  Company Number: GB-JNJFOC-20130707297

PATIENT
  Sex: Female

DRUGS (1)
  1. NICORETTE FRESHFRUIT 2MG GUM [Suspect]
     Indication: PRODUCT USED FOR UNKNOWN INDICATION
     Route: 048

REACTIONS (6)
  - Product taste abnormal [Unknown]
  - Abdominal discomfort [Unknown]
  - Product quality issue [None]
  - Nicotine dependence [Unknown]
  - Intentional drug misuse [Unknown]
  - Hyperchlorhydria [Unknown]
